FAERS Safety Report 9292935 (Version 1)
Quarter: 2013Q2

REPORT INFORMATION
  Report Type: Spontaneous
  Country: US (occurrence: US)
  Receive Date: 20130516
  Receipt Date: 20130516
  Transmission Date: 20140414
  Serious: Yes (Other)
  Sender: FDA-Public Use
  Company Number: US-ABBOTT-13P-163-1088871-00

PATIENT
  Age: 52 Year
  Sex: Male
  Weight: 86.71 kg

DRUGS (7)
  1. ANDROGEL [Suspect]
     Indication: BLOOD TESTOSTERONE DECREASED
     Dosage: 3 PUMPS GEL
     Route: 061
     Dates: start: 201304, end: 201304
  2. ANDROGEL [Suspect]
     Dosage: 4 PUMPS
     Route: 061
     Dates: start: 201304, end: 20130511
  3. ANDROGEL [Suspect]
     Dosage: 2 PUMPS
     Route: 061
     Dates: start: 20130511, end: 20130513
  4. LITHIUM [Concomitant]
     Indication: BIPOLAR DISORDER
  5. ZOLOFT [Concomitant]
     Indication: PRODUCT USED FOR UNKNOWN INDICATION
  6. NEXIUM [Concomitant]
     Indication: PRODUCT USED FOR UNKNOWN INDICATION
  7. LEVOTHYROXINE (GENERIC) [Concomitant]
     Indication: THYROID DISORDER

REACTIONS (6)
  - Suicidal ideation [Not Recovered/Not Resolved]
  - Anxiety [Recovering/Resolving]
  - Depression [Unknown]
  - Hot flush [Unknown]
  - Nervousness [Recovering/Resolving]
  - Weight decreased [Not Recovered/Not Resolved]
